FAERS Safety Report 20876193 (Version 2)
Quarter: 2022Q3

REPORT INFORMATION
  Report Type: Report from Study
  Country: US (occurrence: US)
  Receive Date: 20220526
  Receipt Date: 20220825
  Transmission Date: 20221027
  Serious: Yes (Other)
  Sender: FDA-Public Use
  Company Number: US-ABBVIE-22K-163-4406632-00

PATIENT
  Sex: Female

DRUGS (2)
  1. SKYRIZI [Suspect]
     Active Substance: RISANKIZUMAB-RZAA
     Indication: Psoriasis
     Dosage: WEEK 0
     Route: 058
     Dates: start: 20220324, end: 20220324
  2. SKYRIZI [Suspect]
     Active Substance: RISANKIZUMAB-RZAA
     Dosage: WEEK 4
     Route: 058
     Dates: start: 20220421, end: 20220421

REACTIONS (5)
  - Colon cancer metastatic [Unknown]
  - Hepatic neoplasm [Unknown]
  - Erythema [Unknown]
  - Abdominal pain [Unknown]
  - Scar [Unknown]

NARRATIVE: CASE EVENT DATE: 20220101
